FAERS Safety Report 14183665 (Version 2)
Quarter: 2018Q1

REPORT INFORMATION
  Report Type: Spontaneous
  Country: US (occurrence: US)
  Receive Date: 20171113
  Receipt Date: 20180220
  Transmission Date: 20180508
  Serious: Yes (Hospitalization)
  Sender: FDA-Public Use
  Company Number: PHEH2017US035965

PATIENT
  Age: 6 Year
  Sex: Male
  Weight: 15.8 kg

DRUGS (1)
  1. KYMRIAH [Suspect]
     Active Substance: TISAGENLECLEUCEL
     Indication: ACUTE LYMPHOCYTIC LEUKAEMIA RECURRENT
     Dosage: 1 DF, UNK ONE SINGLE DOSE
     Route: 042
     Dates: start: 20171025

REACTIONS (4)
  - Cytokine release syndrome [Unknown]
  - Pyrexia [Recovered/Resolved]
  - Tachycardia [Recovered/Resolved]
  - C-reactive protein increased [Recovered/Resolved]

NARRATIVE: CASE EVENT DATE: 20171101
